FAERS Safety Report 8371412-9 (Version None)
Quarter: 2012Q2

REPORT INFORMATION
  Report Type: 
  Country: None (occurrence: None)
  Receive Date: 20120518
  Receipt Date: 20120511
  Transmission Date: 20120825
  Serious: Yes (Hospitalization)
  Sender: FDA-Public Use
  Company Number: US-ASTRAZENECA-2012SE30627

PATIENT
  Age: 36 Year
  Sex: Female
  Weight: 63.5 kg

DRUGS (8)
  1. SEROQUEL [Suspect]
     Route: 048
  2. SEROQUEL [Suspect]
     Route: 048
  3. ZOLOFT [Concomitant]
     Indication: ANXIETY
  4. SEROQUEL [Suspect]
     Indication: POST-TRAUMATIC STRESS DISORDER
     Route: 048
  5. SEROQUEL [Suspect]
     Route: 048
  6. SEROQUEL [Suspect]
     Indication: SLEEP DISORDER
     Route: 048
  7. CLONAZEPAM [Concomitant]
     Indication: ANXIETY
  8. SEROQUEL [Suspect]
     Route: 048

REACTIONS (5)
  - PANIC ATTACK [None]
  - INTENTIONAL DRUG MISUSE [None]
  - CONVULSION [None]
  - INSOMNIA [None]
  - FLASHBACK [None]
